FAERS Safety Report 11766652 (Version 1)
Quarter: 2015Q4

REPORT INFORMATION
  Report Type: Spontaneous
  Country: US (occurrence: None)
  Receive Date: 20151120
  Receipt Date: 20151120
  Transmission Date: 20160304
  Serious: Yes (Other)
  Sender: FDA-Public Use
  Company Number: None

PATIENT
  Sex: Female

DRUGS (2)
  1. ORENCIA [Suspect]
     Active Substance: ABATACEPT
     Indication: RHEUMATOID ARTHRITIS
     Route: 058
     Dates: start: 20150902, end: 20151119
  2. LEFLUNOMIDE. [Concomitant]
     Active Substance: LEFLUNOMIDE

REACTIONS (3)
  - Swollen tongue [None]
  - Dysgeusia [None]
  - Glossodynia [None]
